FAERS Safety Report 21411362 (Version 6)
Quarter: 2025Q2

REPORT INFORMATION
  Report Type: Spontaneous
  Country: US (occurrence: US)
  Receive Date: 20221005
  Receipt Date: 20250501
  Transmission Date: 20250717
  Serious: Yes (Other)
  Sender: PFIZER
  Company Number: US-PFIZER INC-PV202200076692

PATIENT
  Age: 72 Year
  Sex: Female

DRUGS (2)
  1. IBRANCE [Suspect]
     Active Substance: PALBOCICLIB
     Indication: Neoplasm malignant
  2. IBRANCE [Suspect]
     Active Substance: PALBOCICLIB
     Indication: Hormone receptor positive HER2 negative breast cancer
     Route: 048

REACTIONS (9)
  - Compression fracture [Unknown]
  - Metastases to bone [Unknown]
  - Tooth extraction [Unknown]
  - Oral infection [Unknown]
  - Malaise [Unknown]
  - Constipation [Unknown]
  - Diverticulum [Unknown]
  - Abdominal pain [Unknown]
  - Weight decreased [Unknown]
